FAERS Safety Report 6655518-8 (Version None)
Quarter: 2010Q1

REPORT INFORMATION
  Report Type: 
  Country: None (occurrence: None)
  Receive Date: 20100329
  Receipt Date: 20100317
  Transmission Date: 20100710
  Serious: Yes (Other)
  Sender: FDA-Public Use
  Company Number: US-PFIZER INC-2010035588

PATIENT
  Sex: Male
  Weight: 83.914 kg

DRUGS (6)
  1. ZITHROMAX [Suspect]
     Indication: PNEUMONIA
     Dosage: 500 MG ON DAY ONE
     Dates: start: 20081001
  2. ZITHROMAX [Suspect]
     Dosage: 250 MG, 1X/DAY
     Dates: start: 20081001
  3. ZITHROMAX [Suspect]
     Dosage: 500 MG ON DAY ONE
     Dates: start: 20091201
  4. ZITHROMAX [Suspect]
     Dosage: 250 MG, 1X/DAY
     Dates: start: 20091201
  5. TERAZOSIN [Concomitant]
     Dosage: UNK
  6. DIOVANE [Concomitant]
     Indication: HYPERTENSION
     Dosage: UNK
     Dates: end: 20100314

REACTIONS (5)
  - BLOOD PRESSURE ABNORMAL [None]
  - HERPES ZOSTER [None]
  - MUSCLE TIGHTNESS [None]
  - PNEUMONIA [None]
  - TENDONITIS [None]
